FAERS Safety Report 5626255-3 (Version None)
Quarter: 2008Q1

REPORT INFORMATION
  Report Type: 
  Country: None (occurrence: None)
  Receive Date: 20080214
  Receipt Date: 20080204
  Transmission Date: 20080703
  Serious: Yes (Hospitalization)
  Sender: FDA-Public Use
  Company Number: ES-ELI_LILLY_AND_COMPANY-ES200802000799

PATIENT
  Age: 78 Year
  Sex: Female

DRUGS (6)
  1. FORTEO [Suspect]
     Indication: OSTEOPOROSIS
     Dosage: 20 UG, DAILY (1/D)
     Route: 058
     Dates: start: 20070401, end: 20071217
  2. INSULIN [Concomitant]
     Indication: DIABETES MELLITUS
  3. OXYGEN [Concomitant]
     Indication: ASPHYXIA
  4. ADIRO [Concomitant]
     Indication: CARDIAC DISORDER
  5. SINTROM [Concomitant]
  6. CALCIUM [Concomitant]

REACTIONS (2)
  - FALL [None]
  - HIP FRACTURE [None]
